FAERS Safety Report 5743832-X (Version None)
Quarter: 2008Q2

REPORT INFORMATION
  Report Type: 
  Country: None (occurrence: None)
  Receive Date: 20080519
  Receipt Date: 20080519
  Transmission Date: 20081010
  Serious: Yes (Congenital Anomaly)
  Sender: FDA-Public Use
  Company Number: None

PATIENT
  Age: 25 Year
  Sex: Female
  Weight: 62 kg

DRUGS (1)
  1. MYCOPHENOLATE MOFETIL [Suspect]
     Indication: SYSTEMIC LUPUS ERYTHEMATOSUS
     Dosage: 1500MG BID PO
     Route: 048
     Dates: start: 20040827, end: 20070615

REACTIONS (6)
  - DRUG EXPOSURE DURING PREGNANCY [None]
  - HYPERTENSION [None]
  - MATERNAL DRUGS AFFECTING FOETUS [None]
  - PRE-ECLAMPSIA [None]
  - PREGNANCY [None]
  - PROTEINURIA [None]
